FAERS Safety Report 8869877 (Version 1)
Quarter: 2012Q4

REPORT INFORMATION
  Report Type: 
  Country: US (occurrence: US)
  Receive Date: 20121026
  Receipt Date: 20121026
  Transmission Date: 20130627
  Serious: No
  Sender: FDA-Public Use
  Company Number: US-AMGEN-USASP2012045936

PATIENT
  Sex: Female

DRUGS (13)
  1. ENBREL [Suspect]
     Indication: PRODUCT USED FOR UNKNOWN INDICATION
     Dosage: 25 mg, 2 times/wk
     Route: 058
  2. CALTRATE                           /00751519/ [Concomitant]
     Dosage: 600 UNK, UNK
  3. JANUVIA [Concomitant]
     Dosage: 25 mg, UNK
  4. SYNTHROID [Concomitant]
     Dosage: 25 mug, UNK
  5. PREDNISONE [Concomitant]
     Dosage: 2.5 mg, UNK
  6. NASONEX [Concomitant]
     Dosage: 50 mug/ac, UNK
  7. OMEPRAZOLE [Concomitant]
     Dosage: 10 mg, UNK
  8. HYDROXYCHLOROQUINE [Concomitant]
     Dosage: 200 mg, UNK
  9. MULTIVITAMINS, PLAIN [Concomitant]
     Dosage: UNK
  10. VITAMIN C                          /00008001/ [Concomitant]
     Dosage: 500 mg, UNK
  11. FISH OIL [Concomitant]
     Dosage: UNK
  12. LORTAB                             /00607101/ [Concomitant]
     Dosage: 2.5-500
  13. VITAMIN D3 [Concomitant]
     Dosage: UNK

REACTIONS (2)
  - Cough [Unknown]
  - Drug ineffective [Unknown]
